FAERS Safety Report 7082918-7 (Version None)
Quarter: 2010Q4

REPORT INFORMATION
  Report Type: 
  Country: None (occurrence: None)
  Receive Date: 20101104
  Receipt Date: 20101029
  Transmission Date: 20110411
  Serious: Yes (Life-Threatening, Hospitalization)
  Sender: FDA-Public Use
  Company Number: PHFR2010GB04403

PATIENT
  Sex: Male

DRUGS (4)
  1. CLOZARIL [Suspect]
     Indication: SCHIZOPHRENIA
     Dosage: UNK
     Route: 048
     Dates: start: 19950127
  2. SALBUTAMOL [Concomitant]
     Indication: BRONCHOSPASM
  3. AMLODIPINE [Concomitant]
     Indication: HYPERTENSION
     Dosage: 5 MG, UNK
     Route: 048
  4. LANSOPRAZOLE [Concomitant]
     Dosage: 30 MG, UNK
     Route: 048

REACTIONS (8)
  - BODY TEMPERATURE INCREASED [None]
  - COORDINATION ABNORMAL [None]
  - DYSPNOEA [None]
  - GASTROINTESTINAL TUBE INSERTION [None]
  - INFLUENZA LIKE ILLNESS [None]
  - MECHANICAL VENTILATION [None]
  - PNEUMONIA [None]
  - RESPIRATORY FAILURE [None]
